FAERS Safety Report 9776247 (Version 1)
Quarter: 2013Q4

REPORT INFORMATION
  Report Type: Spontaneous
  Country: PT (occurrence: None)
  Receive Date: 20131218
  Receipt Date: 20131218
  Transmission Date: 20140711
  Serious: Yes (Life-Threatening, Hospitalization, Other)
  Sender: FDA-Public Use
  Company Number: FK201305210

PATIENT
  Age: 5 Year
  Sex: Male
  Weight: 22 kg

DRUGS (1)
  1. CEFTRIAXONA [Suspect]
     Indication: OTITIS MEDIA ACUTE
     Route: 042
     Dates: start: 20131122, end: 20131122

REACTIONS (1)
  - Anaphylactic reaction [None]
